FAERS Safety Report 4296099-6 (Version None)
Quarter: 2004Q1

REPORT INFORMATION
  Report Type: 
  Country: None (occurrence: None)
  Receive Date: 20040212
  Receipt Date: 20040203
  Transmission Date: 20041129
  Serious: Yes (Hospitalization)
  Sender: FDA-Public Use
  Company Number: FRWYE553203FEB04

PATIENT

DRUGS (1)
  1. TACROLIMUS, CONTROL FOR SIROLIMUS [Suspect]
     Indication: PROPHYLAXIS AGAINST TRANSPLANT REJECTION
     Dosage: ORAL
     Route: 048
     Dates: start: 20030124

REACTIONS (2)
  - IMMUNOSUPPRESSANT DRUG LEVEL INCREASED [None]
  - PYELONEPHRITIS [None]
